FAERS Safety Report 23988974 (Version 2)
Quarter: 2024Q3

REPORT INFORMATION
  Report Type: Spontaneous
  Country: US (occurrence: US)
  Receive Date: 20240619
  Receipt Date: 20240705
  Transmission Date: 20241017
  Serious: Yes (Other)
  Sender: TEVA
  Company Number: US-TEVA-VS-3210138

PATIENT
  Age: 70 Year
  Sex: Male

DRUGS (3)
  1. METFORMIN [Suspect]
     Active Substance: METFORMIN HYDROCHLORIDE
     Indication: Type 2 diabetes mellitus
     Route: 065
  2. ROSIGLITAZONE [Suspect]
     Active Substance: ROSIGLITAZONE
     Indication: Type 2 diabetes mellitus
     Route: 065
  3. SITAGLIPTIN [Suspect]
     Active Substance: SITAGLIPTIN
     Indication: Type 2 diabetes mellitus
     Route: 065

REACTIONS (1)
  - Diabetic neuropathy [Recovering/Resolving]
